FAERS Safety Report 10494378 (Version 1)
Quarter: 2014Q4

REPORT INFORMATION
  Report Type: Spontaneous
  Country: US (occurrence: US)
  Receive Date: 20141003
  Receipt Date: 20141003
  Transmission Date: 20150528
  Serious: Yes (Hospitalization)
  Sender: FDA-Public Use
  Company Number: US-JNJFOC-20141000779

PATIENT
  Age: 87 Year
  Sex: Female
  Weight: 132 kg

DRUGS (13)
  1. VITAMIN C [Concomitant]
     Active Substance: ASCORBIC ACID
  2. VITAMIN B [Concomitant]
     Active Substance: VITAMIN B
  3. GARLIC. [Concomitant]
     Active Substance: GARLIC
  4. FATTY ACIDS NOS [Concomitant]
  5. COUMADIN [Concomitant]
     Active Substance: WARFARIN SODIUM
     Indication: ATRIAL FIBRILLATION
     Dosage: 5 MG ALTERNATING WITH 2.5 MG EVERY OTHER DAY
  6. VITAMIN D [Concomitant]
     Active Substance: CHOLECALCIFEROL
  7. COENZYME Q10 [Concomitant]
     Active Substance: UBIDECARENONE
  8. FOSAMAX [Concomitant]
     Active Substance: ALENDRONATE SODIUM
  9. VITAMIN B12 [Concomitant]
     Active Substance: CYANOCOBALAMIN
  10. MULTIVITAMINS [Concomitant]
     Active Substance: VITAMINS
  11. IMBRUVICA [Suspect]
     Active Substance: IBRUTINIB
     Indication: CHRONIC LYMPHOCYTIC LEUKAEMIA
     Route: 048
     Dates: start: 20140909, end: 20140919
  12. FOLATE [Concomitant]
     Active Substance: FOLATE SODIUM
  13. IRON [Concomitant]
     Active Substance: IRON

REACTIONS (6)
  - Atrial fibrillation [Unknown]
  - Hypotension [Unknown]
  - Asthenia [Unknown]
  - Cardiac failure congestive [Unknown]
  - Clostridium difficile colitis [Unknown]
  - Anaemia [Unknown]

NARRATIVE: CASE EVENT DATE: 201409
